FAERS Safety Report 5915767-0 (Version None)
Quarter: 2008Q4

REPORT INFORMATION
  Report Type: 
  Country: None (occurrence: None)
  Receive Date: 20081010
  Receipt Date: 20081007
  Transmission Date: 20090506
  Serious: Yes (Hospitalization)
  Sender: FDA-Public Use
  Company Number: US-B.I. PHARMACEUTICALS,INC./RIDGEFIELD-2008-BP-15562BP

PATIENT
  Age: 84 Year
  Sex: Female

DRUGS (9)
  1. SPIRIVA [Suspect]
     Indication: CHRONIC OBSTRUCTIVE PULMONARY DISEASE
     Route: 055
     Dates: start: 20080501
  2. ADVAIR DISKUS 100/50 [Concomitant]
  3. ALPHAGAN [Concomitant]
  4. COSOPT [Concomitant]
  5. SYNTHROID [Concomitant]
  6. PRILOSEC [Concomitant]
     Indication: ANTACID THERAPY
  7. LYRICA [Concomitant]
  8. METOPROLOL TARTRATE [Concomitant]
     Indication: BLOOD PRESSURE
  9. LISINOPRIL [Concomitant]
     Indication: BLOOD PRESSURE

REACTIONS (4)
  - ALOPECIA [None]
  - CHEST PAIN [None]
  - DRY THROAT [None]
  - MELANOCYTIC NAEVUS [None]
